FAERS Safety Report 20190272 (Version 1)
Quarter: 2021Q4

REPORT INFORMATION
  Report Type: Spontaneous
  Country: None (occurrence: A1)
  Receive Date: 20211215
  Receipt Date: 20211215
  Transmission Date: 20220304
  Serious: Yes (Other)
  Sender: FDA-Public Use
  Company Number: A1-Acella Pharmaceuticals, LLC-2123073

PATIENT
  Age: 69 Year
  Sex: Male

DRUGS (4)
  1. GABAPENTIN [Suspect]
     Active Substance: GABAPENTIN
     Indication: Neuropathy peripheral
     Route: 065
  2. PROPRANOLOL [Concomitant]
     Active Substance: PROPRANOLOL HYDROCHLORIDE
     Route: 065
  3. TOPIRAMATE [Concomitant]
     Active Substance: TOPIRAMATE
     Route: 065
  4. NORTRIPTYLINE HYDROCHLORIDE [Concomitant]
     Active Substance: NORTRIPTYLINE HYDROCHLORIDE
     Route: 065

REACTIONS (17)
  - Myokymia [Unknown]
  - Muscle spasms [Unknown]
  - Myoclonus [Unknown]
  - Muscle contractions involuntary [Unknown]
  - Tonic clonic movements [Unknown]
  - Gait inability [Unknown]
  - Fall [Unknown]
  - Aggression [Unknown]
  - Aphasia [Unknown]
  - Memory impairment [Unknown]
  - Amnesia [Unknown]
  - Sensory loss [Unknown]
  - Peripheral sensory neuropathy [Unknown]
  - Motor dysfunction [Recovered/Resolved]
  - Tremor [Unknown]
  - Toxicity to various agents [Unknown]
  - Overdose [Unknown]
